FAERS Safety Report 16551154 (Version 1)
Quarter: 2019Q3

REPORT INFORMATION
  Report Type: Spontaneous
  Country: US (occurrence: US)
  Receive Date: 20190710
  Receipt Date: 20190710
  Transmission Date: 20191004
  Serious: No
  Sender: FDA-Public Use
  Company Number: US-BAUSCH-BL-2019-018373

PATIENT
  Sex: Female

DRUGS (1)
  1. LATANOPROST. [Suspect]
     Active Substance: LATANOPROST
     Indication: PRODUCT USED FOR UNKNOWN INDICATION
     Dosage: USING 2 DROPS A DAY IN EACH EYE
     Route: 047

REACTIONS (4)
  - Intraocular pressure increased [Unknown]
  - Therapy cessation [Unknown]
  - Product dropper issue [Unknown]
  - Extra dose administered [Unknown]
